FAERS Safety Report 24925872 (Version 1)
Quarter: 2025Q1

REPORT INFORMATION
  Report Type: Spontaneous
  Country: US (occurrence: US)
  Receive Date: 20250205
  Receipt Date: 20250205
  Transmission Date: 20250409
  Serious: Yes (Other)
  Sender: Steriscience PTE
  Company Number: US-STERISCIENCE B.V.-2025-ST-000114

PATIENT
  Age: 29 Year
  Sex: Female

DRUGS (21)
  1. MIDAZOLAM [Suspect]
     Active Substance: MIDAZOLAM
     Indication: Sedative therapy
     Route: 065
  2. MIDAZOLAM [Suspect]
     Active Substance: MIDAZOLAM
     Indication: General anaesthesia
  3. METOPROLOL [Suspect]
     Active Substance: METOPROLOL
     Indication: Pulmonary hypertension
     Route: 065
  4. ONDANSETRON [Suspect]
     Active Substance: ONDANSETRON
     Indication: Vomiting
     Route: 065
  5. ROCURONIUM BROMIDE [Suspect]
     Active Substance: ROCURONIUM BROMIDE
     Indication: Muscle relaxant therapy
     Route: 065
  6. KETAMINE [Suspect]
     Active Substance: KETAMINE
     Indication: Sedative therapy
     Route: 065
  7. FUROSEMIDE [Suspect]
     Active Substance: FUROSEMIDE
     Indication: Left ventricular failure
     Route: 065
  8. FUROSEMIDE [Suspect]
     Active Substance: FUROSEMIDE
     Indication: Left ventricular failure
  9. FUROSEMIDE [Suspect]
     Active Substance: FUROSEMIDE
     Indication: Left ventricular failure
  10. DIGOXIN [Suspect]
     Active Substance: DIGOXIN
     Indication: Left ventricular failure
     Route: 065
  11. DIGOXIN [Suspect]
     Active Substance: DIGOXIN
     Indication: Left ventricular failure
  12. ILOPROST [Suspect]
     Active Substance: ILOPROST
     Indication: Pulmonary hypertension
     Route: 065
  13. DEXMEDETOMIDINE [Suspect]
     Active Substance: DEXMEDETOMIDINE
     Indication: Sedative therapy
     Dosage: 0.5 MICROGRAM/KILOGRAM, QH
     Route: 065
  14. METOCLOPRAMIDE [Suspect]
     Active Substance: METOCLOPRAMIDE
     Indication: Vomiting
     Route: 065
  15. PROPOFOL [Suspect]
     Active Substance: PROPOFOL
     Indication: General anaesthesia
     Route: 065
  16. FENTANYL [Suspect]
     Active Substance: FENTANYL
     Indication: General anaesthesia
     Route: 065
  17. EPINEPHRINE [Suspect]
     Active Substance: EPINEPHRINE
     Indication: Hypotension
     Route: 065
  18. EPINEPHRINE [Suspect]
     Active Substance: EPINEPHRINE
     Dosage: 0.1 MICROGRAM/KILOGRAM, QMINUTE
     Route: 065
  19. EPINEPHRINE [Suspect]
     Active Substance: EPINEPHRINE
     Dosage: 0.06 MICROGRAM/KILOGRAM, QMINUTE
     Route: 065
  20. EPINEPHRINE [Suspect]
     Active Substance: EPINEPHRINE
     Dosage: 0.01 MICROGRAM/KILOGRAM, QMINUTE
     Route: 065
  21. OXYGEN [Suspect]
     Active Substance: OXYGEN
     Indication: Product used for unknown indication
     Route: 065

REACTIONS (5)
  - Hypotension [Unknown]
  - Vomiting [Unknown]
  - Drug ineffective for unapproved indication [Unknown]
  - Maternal exposure during pregnancy [Unknown]
  - Off label use [Unknown]
